FAERS Safety Report 5147035-1 (Version None)
Quarter: 2006Q4

REPORT INFORMATION
  Report Type: 
  Country: None (occurrence: None)
  Receive Date: 20061109
  Receipt Date: 20061027
  Transmission Date: 20070319
  Serious: Yes (Death)
  Sender: FDA-Public Use
  Company Number: US-ELI_LILLY_AND_COMPANY-US200610004983

PATIENT
  Age: 47 Year
  Sex: Female

DRUGS (3)
  1. PROZAC [Suspect]
     Dates: start: 20040422
  2. FENTANYL CITRATE [Concomitant]
  3. VICODIN [Concomitant]
     Dates: start: 20040422

REACTIONS (2)
  - HYPOTENSION [None]
  - RESPIRATORY DEPRESSION [None]
